FAERS Safety Report 5857526-3 (Version None)
Quarter: 2008Q3

REPORT INFORMATION
  Report Type: 
  Country: None (occurrence: None)
  Receive Date: 20080822
  Receipt Date: 20080813
  Transmission Date: 20090109
  Serious: Yes (Other)
  Sender: FDA-Public Use
  Company Number: 237697J08USA

PATIENT
  Age: 58 Year
  Sex: Female

DRUGS (1)
  1. REBIF [Suspect]
     Indication: MULTIPLE SCLEROSIS
     Dosage: 44 MCG, 3 IN 1 WEEKS, SUBCUTANEOUS
     Route: 058
     Dates: start: 20061026

REACTIONS (6)
  - FEELING HOT [None]
  - HEADACHE [None]
  - HYPERSENSITIVITY [None]
  - MACULAR HOLE [None]
  - SUTURE INSERTION [None]
  - VISUAL ACUITY REDUCED [None]
